FAERS Safety Report 15823539 (Version 2)
Quarter: 2024Q3

REPORT INFORMATION
  Report Type: Spontaneous
  Country: US (occurrence: US)
  Receive Date: 20190114
  Receipt Date: 20240904
  Transmission Date: 20241016
  Serious: Yes (Life-Threatening, Hospitalization, Other)
  Sender: SANOFI AVENTIS
  Company Number: US-MLMSERVICE-20181221-1540267-1

PATIENT
  Age: 26 Year
  Sex: Male

DRUGS (14)
  1. HYDROCORTISONE [Suspect]
     Active Substance: HYDROCORTISONE\HYDROCORTISONE ACETATE
     Indication: Acute lymphocytic leukaemia recurrent
     Dosage: SIX DOSES OF TRIPLE INTRATHECAL CHEMOTHERAPY
     Route: 037
     Dates: start: 2016
  2. HYDROCORTISONE [Suspect]
     Active Substance: HYDROCORTISONE\HYDROCORTISONE ACETATE
     Indication: Metastases to meninges
  3. METHOTREXATE [Suspect]
     Active Substance: METHOTREXATE
     Indication: Metastases to meninges
     Dosage: SIX DOSES OF TRIPLE INTRATHECAL CHEMOTHERAPY
     Route: 037
     Dates: start: 2016
  4. METHOTREXATE [Suspect]
     Active Substance: METHOTREXATE
     Indication: Acute lymphocytic leukaemia recurrent
  5. BLINATUMOMAB [Suspect]
     Active Substance: BLINATUMOMAB
     Indication: Acute lymphocytic leukaemia recurrent
     Dosage: 9 UG, QD
     Dates: start: 2016
  6. BLINATUMOMAB [Suspect]
     Active Substance: BLINATUMOMAB
     Indication: Metastases to meninges
     Dosage: ESCALATED TO 28 MG DAILY ON DAY 8
  7. CYTARABINE [Suspect]
     Active Substance: CYTARABINE
     Indication: Acute lymphocytic leukaemia recurrent
     Dosage: SIX DOSES OF TRIPLE INTRATHECAL CHEMOTHERAPY
     Route: 037
     Dates: start: 2016
  8. CYTARABINE [Suspect]
     Active Substance: CYTARABINE
     Indication: Metastases to meninges
  9. LACOSAMIDE [Concomitant]
     Active Substance: LACOSAMIDE
     Indication: Epilepsy
  10. LEVETIRACETAM [Concomitant]
     Active Substance: LEVETIRACETAM
     Indication: Epilepsy
  11. LORAZEPAM [Concomitant]
     Active Substance: LORAZEPAM
     Indication: Epilepsy
  12. PROPOFOL [Concomitant]
     Active Substance: PROPOFOL
     Indication: Sedation
     Dosage: ON DAYS 4, 8, AND 11
  13. CLONAZEPAM [Concomitant]
     Active Substance: CLONAZEPAM
     Indication: Epilepsy
  14. MIDAZOLAM [Concomitant]
     Active Substance: MIDAZOLAM
     Indication: Sedation
     Dosage: ON DAYS 4, 8, AND 11

REACTIONS (11)
  - Neurotoxicity [Recovering/Resolving]
  - Incontinence [Recovering/Resolving]
  - Disorientation [Recovering/Resolving]
  - Unresponsive to stimuli [Recovering/Resolving]
  - Speech disorder [Recovering/Resolving]
  - Confusional state [Recovering/Resolving]
  - Asthenia [Recovering/Resolving]
  - Mental status changes [Recovering/Resolving]
  - Depressed level of consciousness [Recovering/Resolving]
  - Hypoxia [Recovering/Resolving]
  - Drug intolerance [Recovering/Resolving]
